FAERS Safety Report 23356217 (Version 1)
Quarter: 2024Q1

REPORT INFORMATION
  Report Type: Spontaneous
  Country: FR (occurrence: FR)
  Receive Date: 20240102
  Receipt Date: 20240102
  Transmission Date: 20240409
  Serious: Yes (Other)
  Sender: FDA-Public Use
  Company Number: None

PATIENT
  Age: 49 Year
  Sex: Male
  Weight: 114 kg

DRUGS (11)
  1. ISONIAZID [Suspect]
     Active Substance: ISONIAZID
     Indication: Disseminated tuberculosis
     Dosage: 300 MG, QD
     Route: 048
     Dates: start: 20230831, end: 20230930
  2. PYRAZINAMIDE [Suspect]
     Active Substance: PYRAZINAMIDE
     Indication: Disseminated tuberculosis
     Dosage: 2 G, QD
     Route: 048
     Dates: start: 20230831, end: 20230930
  3. PYRAZINAMIDE [Suspect]
     Active Substance: PYRAZINAMIDE
     Dosage: 2 G, QD
     Route: 048
     Dates: start: 20231012, end: 20231012
  4. PYRAZINAMIDE [Suspect]
     Active Substance: PYRAZINAMIDE
     Dosage: 2 G, QD
     Route: 048
     Dates: start: 20231020, end: 20231027
  5. ETHAMBUTOL [Suspect]
     Active Substance: ETHAMBUTOL HYDROCHLORIDE
     Indication: Disseminated tuberculosis
     Dosage: 1500 MG, QD
     Route: 048
     Dates: start: 20230831, end: 20230930
  6. ETHAMBUTOL [Suspect]
     Active Substance: ETHAMBUTOL HYDROCHLORIDE
     Dosage: 1500 MG, QD
     Route: 048
     Dates: start: 20231012, end: 20231012
  7. ETHAMBUTOL [Suspect]
     Active Substance: ETHAMBUTOL HYDROCHLORIDE
     Dosage: 1500 MG, QD
     Route: 048
     Dates: start: 20231020
  8. RIFAMPIN [Suspect]
     Active Substance: RIFAMPIN
     Indication: Disseminated tuberculosis
     Dosage: 900 MG, QD
     Route: 048
     Dates: start: 20230831, end: 20230930
  9. RIFAMPIN [Suspect]
     Active Substance: RIFAMPIN
     Dosage: 900 MG, QD
     Route: 048
     Dates: start: 20231012, end: 20231012
  10. RIFAMPIN [Suspect]
     Active Substance: RIFAMPIN
     Dosage: 900 MG, QD
     Route: 048
     Dates: start: 20231020
  11. PYRIDOXINE\THIAMINE [Concomitant]
     Active Substance: PYRIDOXINE\THIAMINE
     Indication: Prophylaxis
     Dosage: UNK

REACTIONS (4)
  - Neuropathy peripheral [Not Recovered/Not Resolved]
  - Parosmia [Recovered/Resolved]
  - Myalgia [Not Recovered/Not Resolved]
  - Arthralgia [Not Recovered/Not Resolved]

NARRATIVE: CASE EVENT DATE: 20230101
